FAERS Safety Report 14615198 (Version 7)
Quarter: 2019Q3

REPORT INFORMATION
  Report Type: Report from Study
  Country: US (occurrence: US)
  Receive Date: 20180308
  Receipt Date: 20190910
  Transmission Date: 20191004
  Serious: Yes (Hospitalization)
  Sender: FDA-Public Use
  Company Number: US-ACTELION-A-NJ2018-168636

PATIENT
  Age: 80 Year
  Sex: Female

DRUGS (18)
  1. WARFARIN [Concomitant]
     Active Substance: WARFARIN
  2. MIRTAZAPINE. [Concomitant]
     Active Substance: MIRTAZAPINE
  3. VITAMIN D [Concomitant]
     Active Substance: VITAMIN D NOS
  4. HYZAAR [Concomitant]
     Active Substance: HYDROCHLOROTHIAZIDE\LOSARTAN POTASSIUM
  5. TYLENOL [Concomitant]
     Active Substance: ACETAMINOPHEN
  6. CARVEDILOL. [Concomitant]
     Active Substance: CARVEDILOL
  7. LASIX [Concomitant]
     Active Substance: FUROSEMIDE
  8. PRILOSEC [Concomitant]
     Active Substance: OMEPRAZOLE MAGNESIUM
  9. DIGOXIN. [Concomitant]
     Active Substance: DIGOXIN
  10. ENSURE [Concomitant]
     Active Substance: AMINO ACIDS\DEXTROSE\ELECTROLYTES NOS\SOYBEAN OIL\VITAMINS
  11. MELOXICAM. [Concomitant]
     Active Substance: MELOXICAM
  12. BACLOFEN. [Concomitant]
     Active Substance: BACLOFEN
  13. FLUTICASONE. [Concomitant]
     Active Substance: FLUTICASONE
  14. ASPIRIN. [Concomitant]
     Active Substance: ASPIRIN
  15. PREDNISONE. [Concomitant]
     Active Substance: PREDNISONE
  16. TRACLEER [Suspect]
     Active Substance: BOSENTAN
     Indication: PULMONARY ARTERIAL HYPERTENSION
     Dosage: 125 MG, BID
     Route: 048
     Dates: start: 20100806
  17. ISOSORBIDE. [Concomitant]
     Active Substance: ISOSORBIDE
  18. GLIMEPIRIDE. [Concomitant]
     Active Substance: GLIMEPIRIDE

REACTIONS (6)
  - Product dose omission [Unknown]
  - Sinusitis [Unknown]
  - Dyspnoea [Unknown]
  - Epistaxis [Unknown]
  - Nasal septum deviation [Unknown]
  - Dementia Alzheimer^s type [Unknown]

NARRATIVE: CASE EVENT DATE: 20180417
